FAERS Safety Report 21530555 (Version 1)
Quarter: 2022Q4

REPORT INFORMATION
  Report Type: Spontaneous
  Country: US (occurrence: None)
  Receive Date: 20221029
  Receipt Date: 20221029
  Transmission Date: 20230113
  Serious: Yes (Other)
  Sender: FDA-Public Use
  Company Number: None

PATIENT
  Age: 45 Year
  Sex: Female
  Weight: 75.6 kg

DRUGS (4)
  1. TYLENOL SINUS SEVERE [Suspect]
     Active Substance: ACETAMINOPHEN\GUAIFENESIN\PHENYLEPHRINE HYDROCHLORIDE
     Indication: Sinus headache
     Dosage: OTHER QUANTITY : 2 TABLET(S);?FREQUENCY : EVERY 4 HOURS;?
     Route: 048
     Dates: start: 20221027, end: 20221028
  2. TYLENOL SINUS SEVERE [Suspect]
     Active Substance: ACETAMINOPHEN\GUAIFENESIN\PHENYLEPHRINE HYDROCHLORIDE
     Indication: Nasal congestion
  3. Sleep apnea Add [Concomitant]
  4. FISH OIL [Concomitant]
     Active Substance: FISH OIL

REACTIONS (4)
  - Blood pressure increased [None]
  - Blindness [None]
  - Speech disorder [None]
  - Oxygen saturation decreased [None]

NARRATIVE: CASE EVENT DATE: 20221027
